FAERS Safety Report 7656497-7 (Version None)
Quarter: 2011Q3

REPORT INFORMATION
  Report Type: 
  Country: None (occurrence: None)
  Receive Date: 20110804
  Receipt Date: 20100817
  Transmission Date: 20111222
  Serious: No
  Sender: FDA-Public Use
  Company Number: US-BAUSCH-2010BL004570

PATIENT
  Age: 29 Year
  Sex: Male
  Weight: 117 kg

DRUGS (2)
  1. OPCON-A [Suspect]
     Indication: EYE PRURITUS
     Route: 047
     Dates: start: 20040101
  2. LISINOPRIL [Concomitant]
     Indication: HYPERTENSION
     Dates: start: 20050101

REACTIONS (1)
  - PROSTATITIS [None]
